FAERS Safety Report 9026320 (Version 3)
Quarter: 2013Q1

REPORT INFORMATION
  Report Type: Spontaneous
  Country: US (occurrence: None)
  Receive Date: 20121231
  Receipt Date: 20130208
  Transmission Date: 20140127
  Serious: Yes (Hospitalization, Other)
  Sender: FDA-Public Use
  Company Number: 2012PROUSA02394

PATIENT
  Age: 82 Year
  Sex: Male
  Weight: 68 kg

DRUGS (8)
  1. PROVENGE (SIPULEUCEL-T) SUSPENSION, 250ML [Suspect]
     Indication: PROSTATE CANCER METASTATIC
     Route: 042
     Dates: start: 20121119, end: 20121119
  2. EVISTA (RALOXIFENE HYDROCHLORIDE) [Concomitant]
  3. LISINOPRIL (LISINOPRIL) [Concomitant]
  4. METOPROLOL (METOPROLOL TARTRATE) [Concomitant]
  5. GABAPENTIN (GABAPENTIN) [Concomitant]
  6. VYTORIN (EZETIMIBE, SIMVASTATIN) [Concomitant]
  7. FLOMAX (TAMSULOSIN HYDROCHLORIDE) [Concomitant]
  8. ACTOS (PIOGLITAZONE HYDROCHLORIDE) [Concomitant]

REACTIONS (7)
  - Fall [None]
  - Cervical vertebral fracture [None]
  - Gait disturbance [None]
  - Ventricular tachycardia [None]
  - Ejection fraction decreased [None]
  - Ventricular extrasystoles [None]
  - Atrial fibrillation [None]
